FAERS Safety Report 5820787-0 (Version None)
Quarter: 2008Q3

REPORT INFORMATION
  Report Type: 
  Country: None (occurrence: None)
  Receive Date: 20080724
  Receipt Date: 20080505
  Transmission Date: 20090109
  Serious: No
  Sender: FDA-Public Use
  Company Number: A0726172A

PATIENT
  Age: 61 Year
  Sex: Female

DRUGS (12)
  1. AVANDIA [Suspect]
     Dosage: 4MG PER DAY
     Route: 048
     Dates: start: 20080501
  2. METFORMIN [Concomitant]
  3. EFFEXOR [Concomitant]
  4. FENTANYL TRANSDERMAL SYSTEM [Concomitant]
  5. PHOSLO [Concomitant]
  6. CITRACAL [Concomitant]
  7. CATAPRES [Concomitant]
  8. PRINIVIL [Concomitant]
  9. LASIX [Concomitant]
  10. K-DUR [Concomitant]
  11. VITAMIN B-12 [Concomitant]
  12. VITAMIN B6 [Concomitant]

REACTIONS (1)
  - DRUG INEFFECTIVE [None]
